FAERS Safety Report 4751092-1 (Version None)
Quarter: 2005Q3

REPORT INFORMATION
  Report Type: 
  Country: None (occurrence: None)
  Receive Date: 20050822
  Receipt Date: 20050808
  Transmission Date: 20060218
  Serious: Yes (Hospitalization)
  Sender: FDA-Public Use
  Company Number: 2005BI012739

PATIENT
  Age: 54 Year
  Sex: Female

DRUGS (16)
  1. AVONEX [Suspect]
     Indication: MULTIPLE SCLEROSIS
     Dosage: 30 UG; QW; IM
     Route: 030
     Dates: start: 19980713, end: 20030811
  2. AVONEX [Suspect]
     Indication: MULTIPLE SCLEROSIS
     Dosage: 30 UG; QW; IM
     Route: 030
     Dates: start: 20030818
  3. DONEPEZIL HCL [Concomitant]
  4. TIZANIDINE HCL [Concomitant]
  5. CALCIUM WITH VITAMIN D [Concomitant]
  6. POTASSIUM PHOSPHATES [Concomitant]
  7. METHOTREXATE [Concomitant]
  8. PANTOPRAZOLE [Concomitant]
  9. OXYBUTYNIN [Concomitant]
  10. ESCITALOPRAM OXALATE [Concomitant]
  11. NITROFURANTOIN [Concomitant]
  12. FERROUS SULFATE [Concomitant]
  13. FOLIC ACID [Concomitant]
  14. MULTIVITAMINS WITH MINERALS [Concomitant]
  15. ACETAMINOPHEN [Concomitant]
  16. LACTASE [Concomitant]

REACTIONS (4)
  - CONVULSION [None]
  - FALL [None]
  - HEAD INJURY [None]
  - TRAUMATIC BRAIN INJURY [None]
